FAERS Safety Report 4887598-4 (Version None)
Quarter: 2006Q1

REPORT INFORMATION
  Report Type: 
  Country: None (occurrence: None)
  Receive Date: 20060119
  Receipt Date: 20060119
  Transmission Date: 20060701
  Serious: Yes (Hospitalization)
  Sender: FDA-Public Use
  Company Number: None

PATIENT
  Age: 64 Year

DRUGS (2)
  1. WARFARIN [Suspect]
     Indication: MITRAL VALVE REPLACEMENT
     Dosage: 6 MG PO MWF AND 4 MG PO OTHER DAYS
     Route: 048
  2. WARFARIN [Suspect]
     Indication: THROMBOSIS PROPHYLAXIS
     Dosage: 6 MG PO MWF AND 4 MG PO OTHER DAYS
     Route: 048

REACTIONS (8)
  - ASTHENIA [None]
  - DIZZINESS [None]
  - EAR HAEMORRHAGE [None]
  - FATIGUE [None]
  - HYPOTENSION [None]
  - MELAENA [None]
  - OCCULT BLOOD POSITIVE [None]
  - UPPER GASTROINTESTINAL HAEMORRHAGE [None]
